FAERS Safety Report 9822173 (Version 2)
Quarter: 2014Q1

REPORT INFORMATION
  Report Type: Spontaneous
  Country: CA (occurrence: CA)
  Receive Date: 20140116
  Receipt Date: 20140116
  Transmission Date: 20141002
  Serious: Yes (Other)
  Sender: FDA-Public Use
  Company Number: CA-ASTRAZENECA-2013SE24594

PATIENT
  Age: 62 Year
  Sex: Female
  Weight: 86 kg

DRUGS (15)
  1. CRESTOR [Suspect]
     Indication: BLOOD CHOLESTEROL INCREASED
     Route: 048
     Dates: start: 201212
  2. MORPHINE SR (NON-AZ PRODUCT) [Suspect]
     Dosage: FOR 1 MONTH
     Route: 065
  3. RITUXAN [Suspect]
     Indication: RHEUMATOID ARTHRITIS
     Dosage: 1000.0 MG, FREQUENCY- CYCLICAL
     Route: 042
     Dates: start: 20120816
  4. ACETAMINOPHEN [Concomitant]
     Route: 048
  5. DIPHENHYDRAMINE HCL INJ USP [Concomitant]
     Dosage: 50 MG/ML
     Route: 030
  6. FISH OIL [Concomitant]
  7. FOLIC ACID [Concomitant]
  8. GARLIC [Concomitant]
  9. HYDROCHLOROTHIAZIDE [Concomitant]
  10. METHOTREXATE [Concomitant]
  11. METHYLPREDNISOLONE NOS [Concomitant]
  12. OMEGA - 3 [Concomitant]
  13. PREDNISONE [Concomitant]
  14. TYLENOL WITH CODEINE NO.3- TAB [Concomitant]
  15. TYLENOL WITH CODEINE NO.3- TAB [Concomitant]
     Route: 042

REACTIONS (7)
  - Rheumatoid arthritis [Not Recovered/Not Resolved]
  - Migraine [Not Recovered/Not Resolved]
  - Arthralgia [Not Recovered/Not Resolved]
  - Nausea [Not Recovered/Not Resolved]
  - Pruritus [Not Recovered/Not Resolved]
  - Blood cholesterol increased [Not Recovered/Not Resolved]
  - Drug ineffective [Unknown]
